FAERS Safety Report 9824491 (Version 2)
Quarter: 2014Q1

REPORT INFORMATION
  Report Type: Spontaneous
  Country: US (occurrence: US)
  Receive Date: 20140116
  Receipt Date: 20140116
  Transmission Date: 20141002
  Serious: No
  Sender: FDA-Public Use
  Company Number: US-GILEAD-2011-0039964

PATIENT
  Age: 67 Year
  Sex: Male

DRUGS (5)
  1. LETAIRIS [Suspect]
     Indication: PULMONARY ARTERIAL HYPERTENSION
     Route: 048
     Dates: start: 20100308
  2. LETAIRIS [Suspect]
     Indication: PULMONARY ARTERY ATRESIA
  3. LETAIRIS [Suspect]
     Indication: FISTULA
  4. LETAIRIS [Suspect]
     Indication: THERAPEUTIC EMBOLISATION
  5. REVATIO [Concomitant]

REACTIONS (1)
  - Dyspnoea [Unknown]
